FAERS Safety Report 12349967 (Version 1)
Quarter: 2016Q2

REPORT INFORMATION
  Report Type: Spontaneous
  Country: US (occurrence: None)
  Receive Date: 20160509
  Receipt Date: 20160509
  Transmission Date: 20160815
  Serious: Yes (Death)
  Sender: FDA-Public Use
  Company Number: None

PATIENT
  Age: 76 Year
  Sex: Male
  Weight: 72.9 kg

DRUGS (2)
  1. AMIODARONE  200 MG [Suspect]
     Active Substance: AMIODARONE
     Indication: ATRIAL FIBRILLATION
     Route: 048
  2. METOPROLOL XL, 50 MG [Suspect]
     Active Substance: METOPROLOL
     Indication: CARDIAC FAILURE
     Route: 048

REACTIONS (5)
  - Nodal rhythm [None]
  - Acute kidney injury [None]
  - Atrioventricular block complete [None]
  - Hyperkalaemia [None]
  - Syncope [None]

NARRATIVE: CASE EVENT DATE: 20150227
